FAERS Safety Report 8529585-0 (Version None)
Quarter: 2012Q3

REPORT INFORMATION
  Report Type: 
  Country: None (occurrence: None)
  Receive Date: 20120717
  Receipt Date: 20120717
  Transmission Date: 20120928
  Serious: Yes (Life-Threatening, Disabling, Other)
  Sender: FDA-Public Use
  Company Number: None

PATIENT
  Age: 67 Year
  Sex: Female
  Weight: 77.5651 kg

DRUGS (3)
  1. LORAZEPAM [Suspect]
     Indication: ANXIETY
     Dosage: 1 EVERY 8 HOURS
     Dates: start: 20120223, end: 20120318
  2. LORAZEPAM [Suspect]
     Indication: FLATULENCE
     Dosage: 1 EVERY 8 HOURS
     Dates: start: 20120223, end: 20120318
  3. ATIVAN [Suspect]
     Indication: ANXIETY
     Dosage: 450 (R) FLUSH AT ONE TIME
     Dates: start: 20120330

REACTIONS (17)
  - RESPIRATORY DISORDER [None]
  - NEUROPATHY PERIPHERAL [None]
  - HEPATIC PAIN [None]
  - RENAL PAIN [None]
  - NERVOUS SYSTEM DISORDER [None]
  - LOSS OF CONSCIOUSNESS [None]
  - FEAR [None]
  - INFECTION [None]
  - DECREASED APPETITE [None]
  - NAUSEA [None]
  - CONVULSION [None]
  - DRUG HYPERSENSITIVITY [None]
  - SLEEP DISORDER [None]
  - PARAESTHESIA [None]
  - SKIN ULCER [None]
  - BACK PAIN [None]
  - SCRATCH [None]
